FAERS Safety Report 4900723-1 (Version None)
Quarter: 2006Q1

REPORT INFORMATION
  Report Type: 
  Country: None (occurrence: None)
  Receive Date: 20060201
  Receipt Date: 20060120
  Transmission Date: 20060701
  Serious: Yes (Hospitalization)
  Sender: FDA-Public Use
  Company Number: A20050799

PATIENT
  Age: 81 Year
  Sex: Female

DRUGS (18)
  1. CRAVIT OPHTHALMIC SOLUTION (0.5% LEVOFLOXACIN OPHTHALMIC SOLUTION) [Suspect]
     Indication: ADHERENT LEUKOMA
     Dosage: 4 TIMES; INTRAOCULAR INSTILLATION
     Route: 031
     Dates: start: 20010801
  2. CRAVIT OPHTHALMIC SOLUTION (0.5% LEVOFLOXACIN OPHTHALMIC SOLUTION) [Suspect]
     Indication: CORNEAL DISORDER
     Dosage: 4 TIMES; INTRAOCULAR INSTILLATION
     Route: 031
     Dates: start: 20010801
  3. CRAVIT OPHTHALMIC SOLUTION (0.5% LEVOFLOXACIN OPHTHALMIC SOLUTION) [Suspect]
     Indication: TRICHIASIS
     Dosage: 4 TIMES; INTRAOCULAR INSTILLATION
     Route: 031
     Dates: start: 20010801
  4. CRAVIT OPHTHALMIC SOLUTION (0.5% LEVOFLOXACIN OPHTHALMIC SOLUTION) [Suspect]
     Indication: ADHERENT LEUKOMA
     Dosage: 4 TIMES; INTRAOCULAR INSTILLATION
     Route: 031
     Dates: start: 20030201
  5. CRAVIT OPHTHALMIC SOLUTION (0.5% LEVOFLOXACIN OPHTHALMIC SOLUTION) [Suspect]
     Indication: CORNEAL DISORDER
     Dosage: 4 TIMES; INTRAOCULAR INSTILLATION
     Route: 031
     Dates: start: 20030201
  6. CRAVIT OPHTHALMIC SOLUTION (0.5% LEVOFLOXACIN OPHTHALMIC SOLUTION) [Suspect]
     Indication: TRICHIASIS
     Dosage: 4 TIMES; INTRAOCULAR INSTILLATION
     Route: 031
     Dates: start: 20030201
  7. FLUMENTHOLON 0.1 OPHTHALMIC SOLUTION (0.1% FLUOROMETHOLONE OPHTHALMIC [Suspect]
     Indication: ADHERENT LEUKOMA
     Dosage: 4 TIMES; INTRAOCULAR INSTILLATION
     Route: 031
     Dates: start: 20010801
  8. FLUMENTHOLON 0.1 OPHTHALMIC SOLUTION (0.1% FLUOROMETHOLONE OPHTHALMIC [Suspect]
     Indication: CORNEAL DISORDER
     Dosage: 4 TIMES; INTRAOCULAR INSTILLATION
     Route: 031
     Dates: start: 20010801
  9. FLUMENTHOLON 0.1 OPHTHALMIC SOLUTION (0.1% FLUOROMETHOLONE OPHTHALMIC [Suspect]
     Indication: TRICHIASIS
     Dosage: 4 TIMES; INTRAOCULAR INSTILLATION
     Route: 031
     Dates: start: 20010801
  10. FLUMENTHOLON 0.1 OPHTHALMIC SOLUTION (0.1% FLUOROMETHOLONE OPHTHALMIC [Suspect]
     Indication: ADHERENT LEUKOMA
     Dosage: 4 TIMES; INTRAOCULAR INSTILLATION
     Route: 031
     Dates: start: 20030201
  11. FLUMENTHOLON 0.1 OPHTHALMIC SOLUTION (0.1% FLUOROMETHOLONE OPHTHALMIC [Suspect]
     Indication: CORNEAL DISORDER
     Dosage: 4 TIMES; INTRAOCULAR INSTILLATION
     Route: 031
     Dates: start: 20030201
  12. FLUMENTHOLON 0.1 OPHTHALMIC SOLUTION (0.1% FLUOROMETHOLONE OPHTHALMIC [Suspect]
     Indication: TRICHIASIS
     Dosage: 4 TIMES; INTRAOCULAR INSTILLATION
     Route: 031
     Dates: start: 20030201
  13. TARIVID OPHTHALMIC OINTMENT (0.3% OFLOXACIN OPHTHALMIC OINTMENT) [Suspect]
     Indication: ADHERENT LEUKOMA
     Dosage: 4 TIMES; INTRAOCULAR INSTILLATION
     Route: 031
     Dates: start: 20010801
  14. TARIVID OPHTHALMIC OINTMENT (0.3% OFLOXACIN OPHTHALMIC OINTMENT) [Suspect]
     Indication: CORNEAL DISORDER
     Dosage: 4 TIMES; INTRAOCULAR INSTILLATION
     Route: 031
     Dates: start: 20010801
  15. TARIVID OPHTHALMIC OINTMENT (0.3% OFLOXACIN OPHTHALMIC OINTMENT) [Suspect]
     Indication: TRICHIASIS
     Dosage: 4 TIMES; INTRAOCULAR INSTILLATION
     Route: 031
     Dates: start: 20010801
  16. TARIVID OPHTHALMIC OINTMENT (0.3% OFLOXACIN OPHTHALMIC OINTMENT) [Suspect]
     Indication: ADHERENT LEUKOMA
     Dosage: 4 TIMES; INTRAOCULAR INSTILLATION
     Route: 031
     Dates: start: 20030201
  17. TARIVID OPHTHALMIC OINTMENT (0.3% OFLOXACIN OPHTHALMIC OINTMENT) [Suspect]
     Indication: CORNEAL DISORDER
     Dosage: 4 TIMES; INTRAOCULAR INSTILLATION
     Route: 031
     Dates: start: 20030201
  18. TARIVID OPHTHALMIC OINTMENT (0.3% OFLOXACIN OPHTHALMIC OINTMENT) [Suspect]
     Indication: TRICHIASIS
     Dosage: 4 TIMES; INTRAOCULAR INSTILLATION
     Route: 031
     Dates: start: 20030201

REACTIONS (3)
  - CANDIDIASIS [None]
  - IMMUNOSUPPRESSION [None]
  - KERATITIS FUNGAL [None]
